FAERS Safety Report 6673473-1 (Version None)
Quarter: 2010Q2

REPORT INFORMATION
  Report Type: 
  Country: None (occurrence: None)
  Receive Date: 20100408
  Receipt Date: 20100329
  Transmission Date: 20101027
  Serious: Yes (Other)
  Sender: FDA-Public Use
  Company Number: CA-SANOFI-AVENTIS-2010SA006984

PATIENT
  Age: 64 Year
  Sex: Male

DRUGS (2)
  1. MULTAQ [Suspect]
     Indication: ATRIAL FIBRILLATION
     Route: 048
     Dates: start: 20100127, end: 20100201
  2. CIPROFLOXACIN [Interacting]
     Indication: URINARY TRACT INFECTION
     Route: 048
     Dates: start: 20100131, end: 20100201

REACTIONS (3)
  - DRUG INTERACTION [None]
  - OFF LABEL USE [None]
  - TORSADE DE POINTES [None]
